FAERS Safety Report 9005315 (Version 1)
Quarter: 2013Q1

REPORT INFORMATION
  Report Type: Spontaneous
  Country: US (occurrence: US)
  Receive Date: 20130108
  Receipt Date: 20130108
  Transmission Date: 20140127
  Serious: No
  Sender: FDA-Public Use
  Company Number: US-GLAXOSMITHKLINE-A0996298A

PATIENT
  Age: 35 Year
  Sex: Female

DRUGS (2)
  1. POTIGA [Suspect]
     Indication: EPILEPSY
     Dosage: 900MG PER DAY
     Route: 065
     Dates: start: 201209
  2. ESLICARBAZEPINE [Concomitant]
     Indication: EPILEPSY
     Route: 048

REACTIONS (2)
  - Aphasia [Recovered/Resolved]
  - Paraesthesia [Recovered/Resolved]
